FAERS Safety Report 5488965-0 (Version None)
Quarter: 2007Q4

REPORT INFORMATION
  Report Type: 
  Country: None (occurrence: None)
  Receive Date: 20071016
  Receipt Date: 20071004
  Transmission Date: 20080405
  Serious: Yes (Death, Hospitalization, Other)
  Sender: FDA-Public Use
  Company Number: 2007-03278

PATIENT
  Age: 61 Year
  Sex: Male

DRUGS (1)
  1. VELCADE [Suspect]
     Indication: MULTIPLE MYELOMA
     Dosage: 1.30 MG/M2, IV BOLUS
     Route: 040
     Dates: start: 20060101

REACTIONS (7)
  - HAEMODYNAMIC INSTABILITY [None]
  - LEUKOCYTOCLASTIC VASCULITIS [None]
  - MALNUTRITION [None]
  - MULTI-ORGAN FAILURE [None]
  - PAIN [None]
  - REFUSAL OF TREATMENT BY PATIENT [None]
  - TOXIC EPIDERMAL NECROLYSIS [None]
